FAERS Safety Report 7332741-0 (Version None)
Quarter: 2011Q1

REPORT INFORMATION
  Report Type: 
  Country: None (occurrence: None)
  Receive Date: 20110304
  Receipt Date: 20110218
  Transmission Date: 20110831
  Serious: No
  Sender: FDA-Public Use
  Company Number: US-TYCO HEALTHCARE/MALLINCKRODT-T201100522

PATIENT
  Age: 88 Year
  Sex: Male

DRUGS (1)
  1. RESTORIL [Suspect]

REACTIONS (2)
  - NERVOUSNESS [None]
  - RESTLESS LEGS SYNDROME [None]
